FAERS Safety Report 6728453-4 (Version None)
Quarter: 2010Q2

REPORT INFORMATION
  Report Type: 
  Country: None (occurrence: None)
  Receive Date: 20100517
  Receipt Date: 20100505
  Transmission Date: 20101027
  Serious: Yes (Other)
  Sender: FDA-Public Use
  Company Number: KW-WATSON-2010-06365

PATIENT
  Age: 28 Year
  Sex: Female

DRUGS (9)
  1. METOCLOPRAMIDE HYDROCHLORIDE [Suspect]
     Indication: DRUG USE FOR UNKNOWN INDICATION
     Dosage: UNK
  2. ISONIAZID [Suspect]
     Indication: TUBERCULOSIS
     Dosage: UNK
  3. OMEPRAZOLE (WATSON LABORATORIES) [Suspect]
     Indication: DRUG USE FOR UNKNOWN INDICATION
     Dosage: 20 MG, BID
  4. TACROLIMUS [Suspect]
     Indication: RENAL TRANSPLANT
     Dosage: 9 MG, DAILY
  5. RIFAMPIN [Suspect]
     Indication: TUBERCULOSIS
     Dosage: UNK
  6. ETHAMBUTOL [Suspect]
     Indication: TUBERCULOSIS
     Dosage: UNK
  7. PYRAZINAMIDE [Suspect]
     Indication: TUBERCULOSIS
     Dosage: UNK
  8. PREDNISOLONE [Concomitant]
     Indication: RENAL TRANSPLANT
     Dosage: UNK
  9. AZATHIOPRINE [Concomitant]
     Indication: RENAL TRANSPLANT
     Dosage: UNK

REACTIONS (7)
  - BLOOD CREATININE INCREASED [None]
  - CHROMATURIA [None]
  - DIARRHOEA [None]
  - DRUG TOXICITY [None]
  - PYREXIA [None]
  - TEAR DISCOLOURATION [None]
  - TREMOR [None]
